FAERS Safety Report 12975581 (Version 3)
Quarter: 2017Q1

REPORT INFORMATION
  Report Type: Spontaneous
  Country: CH (occurrence: CH)
  Receive Date: 20161125
  Receipt Date: 20170116
  Transmission Date: 20170428
  Serious: Yes (Other)
  Sender: FDA-Public Use
  Company Number: CH-JNJFOC-20161122896

PATIENT
  Age: 42 Year
  Sex: Female

DRUGS (6)
  1. INFLIXIMAB [Suspect]
     Active Substance: INFLIXIMAB
     Indication: PRODUCT USED FOR UNKNOWN INDICATION
     Route: 065
     Dates: start: 201507
  2. INFLIXIMAB [Suspect]
     Active Substance: INFLIXIMAB
     Indication: PRODUCT USED FOR UNKNOWN INDICATION
     Route: 065
     Dates: start: 201601, end: 20160820
  3. SIMPONI [Suspect]
     Active Substance: GOLIMUMAB
     Indication: PROCTITIS ULCERATIVE
     Route: 058
     Dates: start: 20160920, end: 20160920
  4. SIMPONI [Suspect]
     Active Substance: GOLIMUMAB
     Indication: PROCTITIS ULCERATIVE
     Route: 058
     Dates: start: 20161106, end: 20161106
  5. SIMPONI [Suspect]
     Active Substance: GOLIMUMAB
     Indication: PROCTITIS ULCERATIVE
     Dosage: TWO WEEKS AFTER 200 MG
     Route: 058
     Dates: start: 20161011, end: 201610
  6. METHOTREXATE. [Concomitant]
     Active Substance: METHOTREXATE
     Route: 065
     Dates: end: 20160920

REACTIONS (1)
  - Myositis [Recovering/Resolving]

NARRATIVE: CASE EVENT DATE: 201611
